FAERS Safety Report 5048496-9 (Version None)
Quarter: 2006Q3

REPORT INFORMATION
  Report Type: 
  Country: None (occurrence: None)
  Receive Date: 20060705
  Receipt Date: 20060622
  Transmission Date: 20061208
  Serious: Yes (Other)
  Sender: FDA-Public Use
  Company Number: 2006-06-1918

PATIENT
  Age: 38 Year
  Sex: Male

DRUGS (2)
  1. INTERFERON ALFA-2B INJECTABLE [Suspect]
     Indication: HEPATITIS C
     Dosage: 100 UG QW
  2. RIBAVIRIN [Suspect]
     Indication: HEPATITIS C
     Dosage: 1000 MG QD

REACTIONS (4)
  - ARTHRALGIA [None]
  - LEWIS-SUMNER SYNDROME [None]
  - MUSCULAR WEAKNESS [None]
  - TONGUE ATROPHY [None]
